FAERS Safety Report 10505634 (Version 1)
Quarter: 2014Q4

REPORT INFORMATION
  Report Type: Spontaneous
  Country: US (occurrence: US)
  Receive Date: 20141008
  Receipt Date: 20141008
  Transmission Date: 20150528
  Serious: Yes (Hospitalization)
  Sender: FDA-Public Use
  Company Number: US-PFIZER INC-2014274572

PATIENT
  Age: 24 Year
  Sex: Male

DRUGS (11)
  1. TRILEPTAL [Suspect]
     Active Substance: OXCARBAZEPINE
     Dosage: UNK
  2. FANAPT [Suspect]
     Active Substance: ILOPERIDONE
     Dosage: UNK
  3. NEURONTIN [Suspect]
     Active Substance: GABAPENTIN
     Dosage: UNK
  4. MAALOX ANTACID [Suspect]
     Active Substance: ALUMINUM HYDROXIDE\DIMETHICONE\MAGNESIUM HYDROXIDE
     Dosage: UNK
  5. MIRALAX [Suspect]
     Active Substance: POLYETHYLENE GLYCOL 3350
     Dosage: UNK
  6. COLACE [Suspect]
     Active Substance: DOCUSATE SODIUM
     Dosage: UNK
  7. PROLIXIN [Suspect]
     Active Substance: FLUPHENAZINE HYDROCHLORIDE
     Dosage: UNK
  8. DULCOLAX [Suspect]
     Active Substance: BISACODYL OR DOCUSATE SODIUM
     Dosage: UNK
  9. VISTARIL [Suspect]
     Active Substance: HYDROXYZINE PAMOATE
     Dosage: UNK
  10. ZYPREXA ZYDIS [Suspect]
     Active Substance: OLANZAPINE
     Dosage: UNK
  11. LAMICTAL [Suspect]
     Active Substance: LAMOTRIGINE
     Dosage: UNK

REACTIONS (3)
  - Vein discolouration [Unknown]
  - Skin discolouration [Unknown]
  - Asthenia [Unknown]

NARRATIVE: CASE EVENT DATE: 20140907
